FAERS Safety Report 5650599-2 (Version None)
Quarter: 2008Q1

REPORT INFORMATION
  Report Type: 
  Country: None (occurrence: None)
  Receive Date: 20080303
  Receipt Date: 20080221
  Transmission Date: 20080703
  Serious: Yes (Disabling)
  Sender: FDA-Public Use
  Company Number: GXKR2008GB01869

PATIENT
  Age: 82 Year
  Sex: Female
  Weight: 65.5 kg

DRUGS (7)
  1. VERAPAMIL [Suspect]
     Indication: HYPERTENSION
     Dosage: 280 MG, QD, ORAL; 240 MG, QD, ORAL
     Route: 048
     Dates: start: 20071101, end: 20080104
  2. VERAPAMIL [Suspect]
     Indication: HYPERTENSION
     Dosage: 280 MG, QD, ORAL; 240 MG, QD, ORAL
     Route: 048
     Dates: start: 20080104, end: 20080125
  3. VERAPAMIL HYDROCHLORIDE [Suspect]
     Indication: HYPERTENSION
     Dosage: 120 MG, BID, ORAL
     Route: 048
     Dates: start: 20070726, end: 20071101
  4. FUROSEMIDE [Concomitant]
  5. OMEPRAZOLE [Concomitant]
  6. ACETAMINOPHEN [Concomitant]
  7. SPIRONOLACTONE [Concomitant]

REACTIONS (3)
  - MUSCULOSKELETAL STIFFNESS [None]
  - MYALGIA [None]
  - PHARMACEUTICAL PRODUCT COMPLAINT [None]
